FAERS Safety Report 15505501 (Version 1)
Quarter: 2018Q4

REPORT INFORMATION
  Report Type: Spontaneous
  Country: US (occurrence: US)
  Receive Date: 20181010
  Receipt Date: 20181010
  Transmission Date: 20190205
  Serious: No
  Sender: FDA-Public Use
  Company Number: None

PATIENT
  Age: 64 Year
  Sex: Male

DRUGS (1)
  1. AFINITOR [Suspect]
     Active Substance: EVEROLIMUS
     Dates: start: 20181001

REACTIONS (5)
  - Prostatomegaly [None]
  - Depression [None]
  - Urinary tract infection [None]
  - Pollakiuria [None]
  - Negative thoughts [None]

NARRATIVE: CASE EVENT DATE: 20181006
